FAERS Safety Report 9511618 (Version 1)
Quarter: 2013Q1

REPORT INFORMATION
  Report Type: Spontaneous
  Country: US (occurrence: None)
  Receive Date: 20130305
  Receipt Date: 20130305
  Transmission Date: 20140127
  Serious: Yes (Hospitalization, Other)
  Sender: FDA-Public Use
  Company Number: 163-21880-12030565

PATIENT
  Age: 61 Year
  Sex: Female
  Weight: 107.96 kg

DRUGS (22)
  1. REVLIMID (LENALIDOMIDE) (25 MILLIGRAM, CAPSULES) [Suspect]
     Indication: PLASMA CELL MYELOMA
     Dosage: 25 MG, DAILY X 3 WEEKS, 1 WEEK OFF, PO
     Route: 048
     Dates: start: 20120210, end: 20120301
  2. VELCADE [Suspect]
     Indication: PLASMA CELL MYELOMA
     Dosage: 2 MG, WEEKLY X3WKS Q28D, SC
     Route: 058
     Dates: start: 20120210, end: 20120224
  3. WARFARIN SODIUM (WARFARIN SODIUM) (TABLETS) [Concomitant]
  4. ZOFRAN (ONDANSETRON HYDROCHLORIDE) (TABLETS) [Concomitant]
  5. ASPIRIN (ACETYLSALICYLIC ACID) (UNKNOWN) (ACETYLSALICYLIC ACID) [Concomitant]
  6. BENICAR HCT (BENICAR HCT) (UNKNOWN) [Concomitant]
  7. CELEBREX (CELECOXIB) (UNKNOWN) [Concomitant]
  8. GLUCOPHAGE (METFORMIN HYDROCHLORIDE) (TABLETS) [Concomitant]
  9. LIPITOR (ATORVASTATIN) (UNKNOWN) [Concomitant]
  10. LOPRESSOR (METOPROLOL TARTRATE) (UNKNOWN)? [Concomitant]
  11. SYNTHROID (LEVOTHYROXINE SODIUM) (TABLETS) [Concomitant]
  12. ZOMETA (ZOLEDRONIC ACID) (UNKNOWN) [Concomitant]
  13. DYNACIRC (ISRADIPINE) (UNKNOWN) [Concomitant]
  14. DOXYCYCLINE (DOXYCYCLINE) (UNKNOWN) [Concomitant]
  15. VANCOMYCIN (VANCOMYCIN) (UNKNOWN) [Concomitant]
  16. LISINOPRIL (LISINOPRIL) (UNKNOWN) [Concomitant]
  17. LEVAQUIN (LEVOFLOXACIN) (UNKNOWN) [Concomitant]
  18. HYDRALAZINE (HYDRALAZINE) (UNKNOWN) [Concomitant]
  19. ISRADIPINE (ISRADIPINE) (UNKNOWN) [Concomitant]
  20. NEUPOGEN (FILGRASTIM) (UNKNOWN) [Concomitant]
  21. AMBIEN (ZOLPIDEM TARTRATE) (UNKNOWN)? [Concomitant]
  22. PROTONIX (UNKNOWN) [Concomitant]

REACTIONS (9)
  - Coagulopathy [None]
  - Diarrhoea [None]
  - Nausea [None]
  - Vomiting [None]
  - Dehydration [None]
  - Hypovolaemia [None]
  - Renal failure acute [None]
  - Rash [None]
  - Pancytopenia [None]
